FAERS Safety Report 4781394-4 (Version None)
Quarter: 2005Q3

REPORT INFORMATION
  Report Type: 
  Country: None (occurrence: None)
  Receive Date: 20050928
  Receipt Date: 20050907
  Transmission Date: 20060218
  Serious: Yes (Death, Hospitalization)
  Sender: FDA-Public Use
  Company Number: JP-MERCK-0509USA01255

PATIENT
  Age: 79 Year
  Sex: Male
  Weight: 56 kg

DRUGS (13)
  1. DECADRON [Suspect]
     Indication: LUNG NEOPLASM MALIGNANT
     Route: 048
     Dates: start: 20030101
  2. CARBOPLATIN [Concomitant]
     Indication: LUNG NEOPLASM MALIGNANT
     Route: 051
     Dates: start: 20031027
  3. CARBOPLATIN [Concomitant]
     Route: 051
     Dates: start: 20031216
  4. PACLITAXEL [Concomitant]
     Indication: LUNG NEOPLASM MALIGNANT
     Route: 051
     Dates: start: 20031027
  5. PACLITAXEL [Concomitant]
     Route: 051
     Dates: start: 20031216
  6. LASIX [Concomitant]
     Route: 048
  7. ASPIRIN [Concomitant]
     Route: 048
  8. TAKEPRON [Concomitant]
     Route: 048
  9. ALUMINUM HYDROXIDE AND MAGNESIUM TRISILICATE [Concomitant]
     Indication: RADIOTHERAPY
     Route: 048
  10. ALLOID G [Concomitant]
     Indication: RADIOTHERAPY
     Route: 048
  11. FRANDOL TAPE S [Concomitant]
     Route: 061
  12. [THERAPY UNSPECIFIED] [Concomitant]
     Route: 065
  13. RESTAMIN [Concomitant]
     Indication: PROPHYLAXIS
     Route: 048
     Dates: start: 20040106

REACTIONS (2)
  - RADIATION PNEUMONITIS [None]
  - SEPSIS [None]
